FAERS Safety Report 7406734-9 (Version None)
Quarter: 2011Q2

REPORT INFORMATION
  Report Type: 
  Country: None (occurrence: None)
  Receive Date: 20110406
  Receipt Date: 20110406
  Transmission Date: 20111010
  Serious: Yes (Other)
  Sender: FDA-Public Use
  Company Number: None

PATIENT
  Sex: Female

DRUGS (3)
  1. ENBREL [Suspect]
     Indication: PSORIASIS
     Dosage: 50MG/DOSE TWICE PER WEEK SUBCUTANEOUSLY
     Route: 058
     Dates: start: 20110321
  2. ENBREL [Suspect]
     Indication: PSORIASIS
     Dosage: 50MG/DOSE TWICE PER WEEK SUBCUTANEOUSLY
     Route: 058
     Dates: start: 20110320
  3. ENBREL [Suspect]
     Indication: PSORIASIS
     Dosage: 50MG/DOSE TWICE PER WEEK SUBCUTANEOUSLY
     Route: 058
     Dates: start: 20110215

REACTIONS (4)
  - INJECTION SITE SWELLING [None]
  - INJECTION SITE ERYTHEMA [None]
  - INJECTION SITE PRURITUS [None]
  - INJECTION SITE PAIN [None]
